FAERS Safety Report 16776891 (Version 1)
Quarter: 2019Q3

REPORT INFORMATION
  Report Type: Spontaneous
  Country: PT (occurrence: PT)
  Receive Date: 20190905
  Receipt Date: 20190905
  Transmission Date: 20191005
  Serious: Yes (Other)
  Sender: FDA-Public Use
  Company Number: PHHY2019PT198480

PATIENT
  Age: 12 Year
  Sex: Female

DRUGS (14)
  1. AMOXICILLIN+CLAVULANIC ACID [Suspect]
     Active Substance: AMOXICILLIN\CLAVULANIC ACID
     Indication: ALLERGIC SINUSITIS
  2. CIPROFLOXACIN. [Suspect]
     Active Substance: CIPROFLOXACIN
     Indication: BACTERIAL INFECTION
  3. LINEZOLID. [Suspect]
     Active Substance: LINEZOLID
     Indication: ALLERGIC SINUSITIS
     Route: 065
  4. COTRIMOXAZOLE [Suspect]
     Active Substance: SULFAMETHOXAZOLE\TRIMETHOPRIM
     Indication: ALLERGIC SINUSITIS
     Route: 065
  5. ERYTHROMYCIN. [Suspect]
     Active Substance: ERYTHROMYCIN
     Indication: BACTERIAL INFECTION
  6. AMOXICILLIN+CLAVULANIC ACID [Suspect]
     Active Substance: AMOXICILLIN\CLAVULANIC ACID
     Indication: BACTERIAL INFECTION
     Route: 065
  7. CIPROFLOXACIN. [Suspect]
     Active Substance: CIPROFLOXACIN
     Indication: ALLERGIC SINUSITIS
     Route: 065
  8. ERYTHROMYCIN. [Suspect]
     Active Substance: ERYTHROMYCIN
     Indication: ALLERGIC SINUSITIS
     Route: 065
  9. MEROPENEM. [Suspect]
     Active Substance: MEROPENEM
     Indication: BACTERIAL INFECTION
  10. TEICOPLANIN [Suspect]
     Active Substance: TEICOPLANIN
     Indication: ALLERGIC SINUSITIS
     Route: 065
  11. TEICOPLANIN [Suspect]
     Active Substance: TEICOPLANIN
     Indication: BACTERIAL INFECTION
  12. COTRIMOXAZOLE [Suspect]
     Active Substance: SULFAMETHOXAZOLE\TRIMETHOPRIM
     Indication: BACTERIAL INFECTION
  13. LINEZOLID. [Suspect]
     Active Substance: LINEZOLID
     Indication: BACTERIAL INFECTION
  14. MEROPENEM. [Suspect]
     Active Substance: MEROPENEM
     Indication: ALLERGIC SINUSITIS
     Route: 065

REACTIONS (2)
  - Drug ineffective [Unknown]
  - Chronic rhinosinusitis with nasal polyps [Recovered/Resolved]

NARRATIVE: CASE EVENT DATE: 201803
